FAERS Safety Report 7274280-1 (Version None)
Quarter: 2011Q1

REPORT INFORMATION
  Report Type: 
  Country: None (occurrence: None)
  Receive Date: 20110204
  Receipt Date: 20110128
  Transmission Date: 20110831
  Serious: Yes (Other)
  Sender: FDA-Public Use
  Company Number: US-TEVA-263339USA

PATIENT
  Sex: Male

DRUGS (1)
  1. COPAXONE [Suspect]
     Indication: MULTIPLE SCLEROSIS
     Route: 058
     Dates: start: 20101209

REACTIONS (5)
  - METASTASES TO LUNG [None]
  - ABDOMINAL PAIN UPPER [None]
  - NAUSEA [None]
  - METASTASES TO LIVER [None]
  - RECTAL CANCER [None]
